FAERS Safety Report 12879632 (Version 1)
Quarter: 2016Q4

REPORT INFORMATION
  Report Type: Spontaneous
  Country: FR (occurrence: FR)
  Receive Date: 20161025
  Receipt Date: 20161025
  Transmission Date: 20170207
  Serious: Yes (Death, Hospitalization)
  Sender: FDA-Public Use
  Company Number: FR-ACCORD-045012

PATIENT
  Age: 68 Year
  Sex: Female

DRUGS (17)
  1. AERIUS [Concomitant]
     Active Substance: DESLORATADINE
     Dosage: STRENGTH: 5 MG
  2. SOLU-MEDROL [Concomitant]
     Active Substance: METHYLPREDNISOLONE SODIUM SUCCINATE
     Indication: PREMEDICATION
     Dosage: 40 AND 20 MG ON DAY 01 AND DAY 2
     Dates: start: 20160908, end: 20160909
  3. ALIMTA [Suspect]
     Active Substance: PEMETREXED DISODIUM
     Indication: LUNG ADENOCARCINOMA
     Dosage: 1 BOTTLE OF 100 MG (BATCH NUMBER: C492823L, EXPIRY DATE: JULY 2018) WITH 2 BOTTLES OF 100 MG (BATCH
     Route: 042
     Dates: start: 20160908
  4. METFORMIN [Concomitant]
     Active Substance: METFORMIN HYDROCHLORIDE
  5. DUROGESIC [Concomitant]
     Active Substance: FENTANYL
     Dosage: 100 MCG AND 75 MCG EVERY THREE DAYS
  6. SPECIAFOLIDINE [Concomitant]
     Dosage: STRENGTH: 0.4 MG
  7. CISPLATIN ACCORD [Suspect]
     Active Substance: CISPLATIN
     Indication: LUNG ADENOCARCINOMA
     Dosage: 54 MG ON DAY 1 THEN 62 MG ON DAY 2
     Route: 042
     Dates: start: 20160908, end: 20160909
  8. DAFALGAN [Concomitant]
     Active Substance: ACETAMINOPHEN
     Dosage: STRENGTH: 500 MG
  9. ZOPHREN [Concomitant]
     Active Substance: ONDANSETRON
     Indication: PREMEDICATION
     Dosage: ON DAY 1 AND DAY 2
     Dates: start: 20160908, end: 20160909
  10. ACTISKENAN [Concomitant]
     Active Substance: MORPHINE SULFATE
     Dosage: STRENGTH: 5 MG?FROM 1 TO 4 DOSAGE FORM IF NEEDED
  11. SYMBICORT [Concomitant]
     Active Substance: BUDESONIDE\FORMOTEROL FUMARATE DIHYDRATE
  12. COLCHICINE OPOCALCIUM [Suspect]
     Active Substance: COLCHICINE
     Indication: PRODUCT USED FOR UNKNOWN INDICATION
     Route: 048
     Dates: start: 201606, end: 20160914
  13. PANTOPRAZOLE [Concomitant]
     Active Substance: PANTOPRAZOLE SODIUM
  14. INNOHEP [Concomitant]
     Active Substance: TINZAPARIN SODIUM
  15. CRESTOR [Concomitant]
     Active Substance: ROSUVASTATIN CALCIUM
  16. SOLUPRED [Concomitant]
     Active Substance: PREDNISOLONE
     Dosage: STRENGTH: 20 MG
  17. MOVICOL [Concomitant]
     Active Substance: POLYETHYLENE GLYCOL 3350\POTASSIUM CHLORIDE\SODIUM BICARBONATE\SODIUM CHLORIDE

REACTIONS (5)
  - Pancytopenia [Fatal]
  - Diarrhoea [Fatal]
  - Decreased appetite [Unknown]
  - Acute kidney injury [Fatal]
  - Nausea [Unknown]

NARRATIVE: CASE EVENT DATE: 20160912
